FAERS Safety Report 13904948 (Version 2)
Quarter: 2017Q4

REPORT INFORMATION
  Report Type: Spontaneous
  Country: US (occurrence: US)
  Receive Date: 20170825
  Receipt Date: 20171120
  Transmission Date: 20180320
  Serious: No
  Sender: FDA-Public Use
  Company Number: US-PFIZER INC-2017367352

PATIENT
  Age: 88 Year
  Sex: Male
  Weight: 80.74 kg

DRUGS (2)
  1. VIAGRA [Suspect]
     Active Substance: SILDENAFIL CITRATE
     Indication: SEXUAL DYSFUNCTION
     Dosage: UNK, 50MG TABLET, TAKE HALF BY MOUTH 30 MINUTES BEFORE INTERCOURSE
     Route: 048
     Dates: start: 20170820
  2. LEVODOPA-CARBIDOPA [Concomitant]
     Active Substance: CARBIDOPA\LEVODOPA
     Indication: PARKINSON^S DISEASE
     Dosage: [CARBIDOPA 10MG]/[LEVODOPA 100MG] TABLET. TAKES 1.5 TABLETS BY MOUTH THREE TIMES A DAY
     Route: 048

REACTIONS (1)
  - Drug ineffective [Unknown]

NARRATIVE: CASE EVENT DATE: 20170820
